FAERS Safety Report 23398718 (Version 3)
Quarter: 2024Q1

REPORT INFORMATION
  Report Type: Spontaneous
  Country: CA (occurrence: CA)
  Receive Date: 20240112
  Receipt Date: 20240216
  Transmission Date: 20240410
  Serious: Yes (Other)
  Sender: FDA-Public Use
  Company Number: CA-ALK-ABELLO A/S-2024AA000092

PATIENT

DRUGS (20)
  1. ALNUS INCANA SUBSP. RUGOSA POLLEN [Suspect]
     Active Substance: ALNUS INCANA SUBSP. RUGOSA POLLEN
     Indication: Product used for unknown indication
     Route: 065
  2. BETULA PENDULA POLLEN [Suspect]
     Active Substance: BETULA PENDULA POLLEN
     Indication: Product used for unknown indication
     Route: 065
  3. ACER SACCHARUM POLLEN [Suspect]
     Active Substance: ACER SACCHARUM POLLEN
     Indication: Product used for unknown indication
     Route: 065
  4. ALFALFA POLLEN [Suspect]
     Active Substance: MEDICAGO SATIVA POLLEN
     Indication: Product used for unknown indication
     Route: 065
  5. BROMUS INERMIS POLLEN [Suspect]
     Active Substance: BROMUS INERMIS POLLEN
     Indication: Product used for unknown indication
     Route: 065
  6. SORGHUM HALEPENSE POLLEN [Suspect]
     Active Substance: SORGHUM HALEPENSE POLLEN
     Indication: Product used for unknown indication
     Route: 065
  7. PASPALUM NOTATUM POLLEN [Suspect]
     Active Substance: PASPALUM NOTATUM POLLEN
     Indication: Product used for unknown indication
     Route: 065
  8. AMARANTHUS RETROFLEXUS POLLEN\CHENOPODIUM ALBUM POLLEN\PLANTAGO LANCEO [Suspect]
     Active Substance: AMARANTHUS RETROFLEXUS POLLEN\CHENOPODIUM ALBUM POLLEN\PLANTAGO LANCEOLATA POLLEN\XANTHIUM STRUMARIU
     Indication: Product used for unknown indication
     Route: 065
  9. TARAXACUM OFFICINALE [Suspect]
     Active Substance: TARAXACUM OFFICINALE
     Indication: Product used for unknown indication
     Route: 065
  10. SOLIDAGO CANADENSIS POLLEN [Suspect]
     Active Substance: SOLIDAGO CANADENSIS POLLEN
     Indication: Product used for unknown indication
     Route: 065
  11. ARTEMISIA VULGARIS POLLEN [Suspect]
     Active Substance: ARTEMISIA VULGARIS POLLEN
     Indication: Product used for unknown indication
     Route: 065
  12. RUMEX ACETOSELLA POLLEN [Suspect]
     Active Substance: RUMEX ACETOSELLA POLLEN
     Indication: Product used for unknown indication
     Route: 065
  13. LOLIUM PERENNE POLLEN [Suspect]
     Active Substance: LOLIUM PERENNE POLLEN
     Indication: Product used for unknown indication
     Route: 065
  14. POA PRATENSIS POLLEN [Suspect]
     Active Substance: POA PRATENSIS POLLEN
     Indication: Product used for unknown indication
     Route: 065
  15. DACTYLIS GLOMERATA POLLEN [Suspect]
     Active Substance: DACTYLIS GLOMERATA POLLEN
     Indication: Product used for unknown indication
     Route: 065
  16. AGROSTIS GIGANTEA POLLEN [Suspect]
     Active Substance: AGROSTIS GIGANTEA POLLEN
     Indication: Product used for unknown indication
     Route: 065
  17. ANTHOXANTHUM ODORATUM POLLEN [Suspect]
     Active Substance: ANTHOXANTHUM ODORATUM POLLEN
     Indication: Product used for unknown indication
     Route: 065
  18. PHLEUM PRATENSE POLLEN [Suspect]
     Active Substance: PHLEUM PRATENSE POLLEN
     Indication: Product used for unknown indication
     Route: 065
  19. FESTUCA PRATENSIS POLLEN [Suspect]
     Active Substance: FESTUCA PRATENSIS POLLEN
     Indication: Product used for unknown indication
     Route: 065
  20. STERILE DILUENT FOR ALLERGENIC EXTRACT NOS [Suspect]
     Active Substance: ALBUMIN HUMAN OR GLYCERIN OR PHENOL
     Indication: Product used for unknown indication
     Route: 065

REACTIONS (2)
  - Angioedema [Unknown]
  - Anaphylactic reaction [Unknown]

NARRATIVE: CASE EVENT DATE: 20231011
